FAERS Safety Report 10619127 (Version 1)
Quarter: 2014Q4

REPORT INFORMATION
  Report Type: Spontaneous
  Country: US (occurrence: US)
  Receive Date: 20141202
  Receipt Date: 20141202
  Transmission Date: 20150529
  Serious: No
  Sender: FDA-Public Use
  Company Number: US-ELI_LILLY_AND_COMPANY-US201411010656

PATIENT
  Age: 81 Year
  Sex: Female

DRUGS (3)
  1. HUMALOG [Suspect]
     Active Substance: INSULIN LISPRO
     Indication: TYPE 2 DIABETES MELLITUS
     Dosage: 12 U, BID
     Route: 065
     Dates: start: 20141122
  2. AMARYL [Concomitant]
     Active Substance: GLIMEPIRIDE
     Dosage: 4 MG, UNKNOWN
  3. COUMADIN [Concomitant]
     Active Substance: WARFARIN SODIUM

REACTIONS (5)
  - Blood glucose decreased [Unknown]
  - Oxygen saturation decreased [Recovered/Resolved]
  - Palpitations [Recovered/Resolved]
  - Hyperhidrosis [Unknown]
  - Tremor [Unknown]

NARRATIVE: CASE EVENT DATE: 20141124
